FAERS Safety Report 21998747 (Version 4)
Quarter: 2023Q2

REPORT INFORMATION
  Report Type: Spontaneous
  Country: JP (occurrence: None)
  Receive Date: 20230216
  Receipt Date: 20230417
  Transmission Date: 20230722
  Serious: Yes (Death, Life-Threatening, Other)
  Sender: FDA-Public Use
  Company Number: 2023A038157

PATIENT
  Age: 64 Year
  Sex: Male
  Weight: 100 kg

DRUGS (2)
  1. ONDEXXYA [Suspect]
     Active Substance: ANDEXANET ALFA
     Indication: Haemorrhage
     Dosage: DOSE UNKNOWN
     Route: 042
     Dates: start: 20220128, end: 20220128
  2. ELIQUIS [Concomitant]
     Active Substance: APIXABAN

REACTIONS (4)
  - Hypoxic-ischaemic encephalopathy [Fatal]
  - Asphyxia [Unknown]
  - Cardiac arrest [Recovered/Resolved]
  - Pneumonia aspiration [Unknown]

NARRATIVE: CASE EVENT DATE: 20221231
